FAERS Safety Report 9398478 (Version 1)
Quarter: 2013Q3

REPORT INFORMATION
  Report Type: Spontaneous
  Country: GB (occurrence: GB)
  Receive Date: 20130712
  Receipt Date: 20130712
  Transmission Date: 20140515
  Serious: Yes (Disabling, Other)
  Sender: FDA-Public Use
  Company Number: GB-TEVA-416840ISR

PATIENT
  Age: 2 Decade
  Sex: Male
  Weight: 95.25 kg

DRUGS (6)
  1. MORPHINE [Suspect]
     Indication: FACIAL PAIN
     Dosage: 1-3 TIMES PER DAY. MOST EVER TAKEN WAS 170MG IN ONE DAY.
     Route: 048
     Dates: start: 20061201, end: 20130301
  2. AMITRIPTYLINE [Concomitant]
  3. GABAPENTIN [Concomitant]
  4. TOPIRAMATE [Concomitant]
  5. MIRTAZAPINE [Concomitant]
  6. CODEINE [Concomitant]

REACTIONS (4)
  - Drug dependence [Not Recovered/Not Resolved]
  - Headache [Not Recovered/Not Resolved]
  - Food craving [Not Recovered/Not Resolved]
  - Hyperaesthesia [Not Recovered/Not Resolved]
